FAERS Safety Report 9688207 (Version 2)
Quarter: 2013Q4

REPORT INFORMATION
  Report Type: Spontaneous
  Country: IT (occurrence: IT)
  Receive Date: 20131114
  Receipt Date: 20131118
  Transmission Date: 20140711
  Serious: Yes (Hospitalization, Other)
  Sender: FDA-Public Use
  Company Number: IT-BRISTOL-MYERS SQUIBB COMPANY-19809938

PATIENT
  Age: 86 Year
  Sex: Male

DRUGS (4)
  1. METFORMIN HCL [Suspect]
     Route: 048
     Dates: start: 20120501, end: 20130430
  2. SOLOSA [Suspect]
     Dosage: 3 MG TABS
     Route: 048
     Dates: start: 20120501, end: 20130430
  3. FUROSEMIDE [Concomitant]
  4. LANSOPRAZOLE [Concomitant]

REACTIONS (1)
  - Hypoglycaemic coma [Recovering/Resolving]
